FAERS Safety Report 7905355-9 (Version None)
Quarter: 2011Q4

REPORT INFORMATION
  Report Type: 
  Country: None (occurrence: None)
  Receive Date: 20111109
  Receipt Date: 20111031
  Transmission Date: 20120403
  Serious: Yes (Other)
  Sender: FDA-Public Use
  Company Number: US-ASTRAZENECA-2011SE65906

PATIENT
  Age: 85 Year
  Sex: Female

DRUGS (2)
  1. ARIMIDEX [Suspect]
     Route: 048
  2. SYMBICORT [Suspect]
     Route: 055

REACTIONS (6)
  - BLOOD CALCIUM DECREASED [None]
  - HYPERTENSION [None]
  - HEAD INJURY [None]
  - WRIST FRACTURE [None]
  - NEOPLASM MALIGNANT [None]
  - FALL [None]
